FAERS Safety Report 24136748 (Version 1)
Quarter: 2024Q3

REPORT INFORMATION
  Report Type: Report from Study
  Country: US (occurrence: US)
  Receive Date: 20240725
  Receipt Date: 20240725
  Transmission Date: 20241016
  Serious: Yes (Other)
  Sender: ACADIA PHARMACEUTICALS
  Company Number: US-ACADIA PHARMACEUTICALS INC.-ACA-2024-TRF-003595

PATIENT
  Age: 5 Year
  Sex: Female

DRUGS (1)
  1. DAYBUE [Suspect]
     Active Substance: TROFINETIDE
     Indication: Rett syndrome
     Dosage: 2 MILLILITER, BID
     Route: 048
     Dates: start: 20240712

REACTIONS (6)
  - Self-destructive behaviour [Unknown]
  - Underdose [Unknown]
  - Fear [Unknown]
  - Psychomotor hyperactivity [Unknown]
  - Screaming [Unknown]
  - Anxiety [Unknown]

NARRATIVE: CASE EVENT DATE: 20240712
